FAERS Safety Report 9204201 (Version 1)
Quarter: 2013Q2

REPORT INFORMATION
  Report Type: Spontaneous
  Country: GB (occurrence: GB)
  Receive Date: 20130402
  Receipt Date: 20130402
  Transmission Date: 20140414
  Serious: Yes (Hospitalization)
  Sender: FDA-Public Use
  Company Number: JP-ASTRAZENECA-2013SE20959

PATIENT
  Age: 39 Year
  Sex: Female
  Weight: 70 kg

DRUGS (2)
  1. CANDESARTAN CILEXETIL [Suspect]
     Indication: BLOOD PRESSURE INCREASED
     Route: 048
     Dates: start: 20121212, end: 20121214
  2. CANDESARTAN CILEXETIL [Suspect]
     Indication: BLOOD PRESSURE INCREASED
     Route: 048
     Dates: start: 20130303, end: 20130303

REACTIONS (7)
  - Chest pain [Recovering/Resolving]
  - Dizziness [Recovering/Resolving]
  - VIIth nerve paralysis [Recovering/Resolving]
  - Photopsia [Recovering/Resolving]
  - Migraine [Unknown]
  - Dysarthria [Recovering/Resolving]
  - Vomiting [Recovering/Resolving]
